FAERS Safety Report 25398448 (Version 3)
Quarter: 2025Q3

REPORT INFORMATION
  Report Type: Spontaneous
  Country: US (occurrence: US)
  Receive Date: 20250604
  Receipt Date: 20250813
  Transmission Date: 20251021
  Serious: No
  Sender: SANOFI AVENTIS
  Company Number: US-SA-2025SA157711

PATIENT
  Age: 85 Year
  Sex: Female

DRUGS (2)
  1. DUPIXENT [Suspect]
     Active Substance: DUPILUMAB
     Indication: Chronic obstructive pulmonary disease
     Dosage: 300 MG, QOW
     Route: 058
     Dates: start: 20250407, end: 202506
  2. DUPIXENT [Suspect]
     Active Substance: DUPILUMAB
     Dosage: 300 MG, QOW
     Route: 058
     Dates: start: 20250703

REACTIONS (15)
  - Weight decreased [Unknown]
  - Fatigue [Unknown]
  - Respiratory tract infection [Recovered/Resolved]
  - Dyspnoea [Unknown]
  - Chest discomfort [Unknown]
  - Oxygen saturation decreased [Unknown]
  - Condition aggravated [Unknown]
  - Crepitations [Unknown]
  - Secretion discharge [Unknown]
  - Productive cough [Unknown]
  - Peripheral swelling [Recovered/Resolved]
  - Localised infection [Recovered/Resolved]
  - Limb operation [Unknown]
  - Oral herpes [Recovered/Resolved]
  - Injection site pain [Recovering/Resolving]

NARRATIVE: CASE EVENT DATE: 20250101
